FAERS Safety Report 11679768 (Version 2)
Quarter: 2015Q4

REPORT INFORMATION
  Report Type: Spontaneous
  Country: US (occurrence: US)
  Receive Date: 20151027
  Receipt Date: 20151104
  Transmission Date: 20160304
  Serious: No
  Sender: FDA-Public Use
  Company Number: US-ELI_LILLY_AND_COMPANY-US201003008578

PATIENT
  Age: 71 Year
  Sex: Female

DRUGS (4)
  1. FORTEO [Suspect]
     Active Substance: TERIPARATIDE
     Dosage: 20 UG, DAILY (1/D)
  2. VITAMIN D [Concomitant]
     Active Substance: CHOLECALCIFEROL
  3. FORTEO [Suspect]
     Active Substance: TERIPARATIDE
     Indication: OSTEOPOROSIS
     Dosage: 20 UG, DAILY (1/D)
     Route: 065
     Dates: start: 201001
  4. CALCIUM [Concomitant]
     Active Substance: CALCIUM

REACTIONS (22)
  - Hypokinesia [Unknown]
  - Amnesia [Not Recovered/Not Resolved]
  - Bone pain [Recovering/Resolving]
  - Hypotension [Unknown]
  - Hypersomnia [Unknown]
  - Feeling abnormal [Unknown]
  - Staphylococcal infection [Unknown]
  - Asthenia [Recovered/Resolved]
  - Injection site bruising [Unknown]
  - Furuncle [Unknown]
  - Headache [Unknown]
  - Fatigue [Not Recovered/Not Resolved]
  - Abdominal pain upper [Unknown]
  - Hyperhidrosis [Unknown]
  - Liver function test abnormal [Unknown]
  - Palpitations [Unknown]
  - Onychoclasis [Unknown]
  - Disorientation [Unknown]
  - Visual impairment [Not Recovered/Not Resolved]
  - Rhinorrhoea [Not Recovered/Not Resolved]
  - Chest pain [Recovered/Resolved]
  - Pain [Unknown]

NARRATIVE: CASE EVENT DATE: 201105
